FAERS Safety Report 13855508 (Version 3)
Quarter: 2020Q3

REPORT INFORMATION
  Report Type: Report from Study
  Country: PH (occurrence: PH)
  Receive Date: 20170810
  Receipt Date: 20180110
  Transmission Date: 20201105
  Serious: Yes (Hospitalization, Other)
  Sender: FDA-Public Use
  Company Number: PH-ASTRAZENECA-2017SE35884

PATIENT
  Age: 23338 Day
  Sex: Female

DRUGS (32)
  1. LEVOFLOXACIN. [Concomitant]
     Active Substance: LEVOFLOXACIN
     Indication: BRONCHITIS
     Route: 048
     Dates: start: 20170204
  2. DOXOFYLLINE [Concomitant]
     Active Substance: DOXOFYLLINE
     Indication: DYSPNOEA
     Route: 048
     Dates: start: 20161015, end: 20170126
  3. N?ACETYLCYSTEINE [Concomitant]
     Active Substance: ACETYLCYSTEINE
     Indication: BRONCHITIS
     Route: 048
     Dates: start: 20170126, end: 20170311
  4. COMBIVENT NEBULE [Concomitant]
     Indication: DYSPNOEA
     Dosage: 3.0ML AS REQUIRED
     Route: 055
     Dates: start: 20160602, end: 20161202
  5. TREMELIMUMAB. [Suspect]
     Active Substance: TREMELIMUMAB
     Indication: NON-SMALL CELL LUNG CANCER
     Dosage: 49.0MG/KG ONCE/SINGLE ADMINISTRATION
     Route: 042
     Dates: start: 20160914, end: 20160914
  6. CALMAG [Concomitant]
     Indication: HYPOMAGNESAEMIA
     Route: 048
     Dates: start: 20160924, end: 20161015
  7. PREGABALIN. [Concomitant]
     Active Substance: PREGABALIN
     Indication: PAIN
     Dosage: 75 MG EVERY 12 HOURS
     Route: 048
     Dates: start: 20170126, end: 20170311
  8. CALTRATE WITH VITAMIN D [Concomitant]
     Active Substance: CALCIUM CARBONATE\CHOLECALCIFEROL
     Indication: HYPOCALCAEMIA
     Dosage: 1 TABLET BID
     Route: 048
     Dates: start: 20170204
  9. CINNARIZINE [Concomitant]
     Active Substance: CINNARIZINE
     Indication: DIZZINESS
     Dosage: 75.0MG AS REQUIRED
     Route: 048
     Dates: start: 20161015, end: 20161202
  10. MEDI4736 [Suspect]
     Active Substance: DURVALUMAB
     Indication: NON-SMALL CELL LUNG CANCER
     Dosage: 960.0MG ONCE/SINGLE ADMINISTRATION
     Route: 042
     Dates: start: 20160806, end: 20160806
  11. MEDI4736 [Suspect]
     Active Substance: DURVALUMAB
     Indication: NON-SMALL CELL LUNG CANCER
     Dosage: 950.0MG ONCE/SINGLE ADMINISTRATION
     Route: 042
     Dates: start: 20161112, end: 20161112
  12. TREMELIMUMAB. [Suspect]
     Active Substance: TREMELIMUMAB
     Indication: NON-SMALL CELL LUNG CANCER
     Dosage: 47.0MG ONCE/SINGLE ADMINISTRATION
     Route: 042
     Dates: start: 20161015, end: 20161015
  13. TREMELIMUMAB. [Suspect]
     Active Substance: TREMELIMUMAB
     Indication: NON-SMALL CELL LUNG CANCER
     Dosage: 48.0MG ONCE/SINGLE ADMINISTRATION
     Route: 042
     Dates: start: 20170104, end: 20170104
  14. VITAMIN A, VITAMIN B1, VITAMIN B2, VITAMIN B3, VITAMIN B6, VITAMIN ... [Concomitant]
     Indication: DECREASED APPETITE
     Dosage: EVERY DAY
     Route: 048
     Dates: start: 20160602, end: 20170311
  15. HERACLENE FORTE [Concomitant]
     Indication: DECREASED APPETITE
     Route: 048
     Dates: start: 20161112, end: 20170311
  16. MORPHINE [Concomitant]
     Active Substance: MORPHINE
     Indication: PAIN
     Dosage: 10.0MG AS REQUIRED
     Route: 048
     Dates: start: 20170126, end: 20170311
  17. MORPHINE [Concomitant]
     Active Substance: MORPHINE
     Indication: PAIN
     Dosage: 30 MG EVERY 8 HOURS AS REQUIRED
     Route: 048
     Dates: start: 20170126, end: 20170311
  18. MEDI4736 [Suspect]
     Active Substance: DURVALUMAB
     Indication: NON-SMALL CELL LUNG CANCER
     Dosage: 940.0MG ONCE/SINGLE ADMINISTRATION
     Route: 042
     Dates: start: 20161015, end: 20161015
  19. TREMELIMUMAB. [Suspect]
     Active Substance: TREMELIMUMAB
     Indication: NON-SMALL CELL LUNG CANCER
     Dosage: 45.0MG ONCE/SINGLE ADMINISTRATION
     Route: 042
     Dates: start: 20170204, end: 20170204
  20. MEDI4736 [Suspect]
     Active Substance: DURVALUMAB
     Indication: NON-SMALL CELL LUNG CANCER
     Dosage: 900.0MG ONCE/SINGLE ADMINISTRATION
     Route: 042
     Dates: start: 20170204, end: 20170204
  21. TREMELIMUMAB. [Suspect]
     Active Substance: TREMELIMUMAB
     Indication: NON-SMALL CELL LUNG CANCER
     Dosage: 48.0MG ONCE/SINGLE ADMINISTRATION
     Route: 042
     Dates: start: 20160706, end: 20160706
  22. NORGESIC FORTE [Concomitant]
     Active Substance: ASPIRIN\CAFFEINE\ORPHENADRINE CITRATE
     Indication: PAIN
     Dosage: 1 TABLET EVERY 8 HOURS
     Route: 048
     Dates: start: 20170127, end: 20170311
  23. OMEPRAZOLE. [Concomitant]
     Active Substance: OMEPRAZOLE
     Indication: HYPERCHLORHYDRIA
     Route: 048
     Dates: start: 20161015, end: 20161111
  24. MEDI4736 [Suspect]
     Active Substance: DURVALUMAB
     Indication: NON-SMALL CELL LUNG CANCER
     Dosage: 960.0MG ONCE/SINGLE ADMINISTRATION
     Route: 042
     Dates: start: 20160706, end: 20160706
  25. MEDI4736 [Suspect]
     Active Substance: DURVALUMAB
     Indication: NON-SMALL CELL LUNG CANCER
     Dosage: 960.0MG ONCE/SINGLE ADMINISTRATION
     Route: 042
     Dates: start: 20170104, end: 20170104
  26. AMLODIPINE [Concomitant]
     Active Substance: AMLODIPINE BESYLATE
     Indication: HYPERTENSION
     Route: 048
     Dates: start: 20160602, end: 20170311
  27. CALMAG [Concomitant]
     Indication: HYPOMAGNESAEMIA
     Route: 048
     Dates: start: 20160914, end: 20160924
  28. MEDI4736 [Suspect]
     Active Substance: DURVALUMAB
     Indication: NON-SMALL CELL LUNG CANCER
     Dosage: 980.0MG ONCE/SINGLE ADMINISTRATION
     Route: 042
     Dates: start: 20160914, end: 20160914
  29. TREMELIMUMAB. [Suspect]
     Active Substance: TREMELIMUMAB
     Indication: NON-SMALL CELL LUNG CANCER
     Dosage: 48.0MG ONCE/SINGLE ADMINISTRATION
     Route: 042
     Dates: start: 20160806, end: 20160806
  30. ESSENTIALE FORTE [Concomitant]
     Indication: HEPATIC ENZYME INCREASED
     Route: 048
     Dates: start: 20161015, end: 20170311
  31. CALMAG [Concomitant]
     Indication: HYPOMAGNESAEMIA
     Route: 048
     Dates: start: 20161015, end: 20161112
  32. ALGESIA [Concomitant]
     Indication: PAIN
     Dosage: 1 TABLET EVERY 8 HOURS
     Route: 048
     Dates: start: 20161015, end: 20161111

REACTIONS (2)
  - Musculoskeletal chest pain [Recovering/Resolving]
  - Autoimmune hepatitis [Not Recovered/Not Resolved]

NARRATIVE: CASE EVENT DATE: 20161111
